FAERS Safety Report 8183397-9 (Version None)
Quarter: 2012Q1

REPORT INFORMATION
  Report Type: 
  Country: None (occurrence: None)
  Receive Date: 20120130
  Receipt Date: 20110930
  Transmission Date: 20120608
  Serious: Yes (Other)
  Sender: FDA-Public Use
  Company Number: 042606

PATIENT
  Sex: Male
  Weight: 65.8 kg

DRUGS (3)
  1. TEGRETOL [Concomitant]
  2. KEPPRA [Suspect]
     Indication: PARTIAL SEIZURES
     Dosage: (1000 MG ORAL)
     Route: 048
     Dates: start: 20080101
  3. KEPPRA [Suspect]
     Indication: GRAND MAL CONVULSION
     Dosage: (1000 MG ORAL)
     Route: 048
     Dates: start: 20080101

REACTIONS (2)
  - CONVULSION [None]
  - CONTUSION [None]
